FAERS Safety Report 24097769 (Version 1)
Quarter: 2024Q3

REPORT INFORMATION
  Report Type: Report from Study
  Country: US (occurrence: None)
  Receive Date: 20240716
  Receipt Date: 20240716
  Transmission Date: 20241017
  Serious: Yes (Other)
  Sender: ASTRAZENECA
  Company Number: 2024A156951

PATIENT
  Sex: Female

DRUGS (1)
  1. TAGRISSO [Suspect]
     Active Substance: OSIMERTINIB
     Indication: Lung neoplasm malignant
     Route: 048
     Dates: start: 20210723

REACTIONS (7)
  - Lymphadenopathy [Unknown]
  - Dry skin [Unknown]
  - Diarrhoea [Unknown]
  - Platelet count decreased [Unknown]
  - Hair texture abnormal [Unknown]
  - Nail disorder [Unknown]
  - White blood cell count decreased [Unknown]
